FAERS Safety Report 16479896 (Version 2)
Quarter: 2019Q3

REPORT INFORMATION
  Report Type: Report from Study
  Country: FR (occurrence: FR)
  Receive Date: 20190626
  Receipt Date: 20190708
  Transmission Date: 20191004
  Serious: Yes (Hospitalization, Other)
  Sender: FDA-Public Use
  Company Number: FR-OTSUKA-2019_023869

PATIENT
  Sex: Male
  Weight: 90 kg

DRUGS (4)
  1. TOLVAPTAN [Suspect]
     Active Substance: TOLVAPTAN
     Indication: CONGENITAL CYSTIC KIDNEY DISEASE
     Dosage: UNK
     Route: 048
  2. EUPRESSYL [Concomitant]
     Active Substance: URAPIDIL
     Indication: HYPERTENSION
     Dosage: 30 MG, QD
     Route: 048
  3. TAREG [Concomitant]
     Active Substance: VALSARTAN
     Indication: HYPERTENSION
     Dosage: 160 MG, QD
     Route: 048
  4. LERCANIDIPINE [Concomitant]
     Active Substance: LERCANIDIPINE
     Indication: HYPERTENSION
     Dosage: 20 MG, QD
     Route: 048

REACTIONS (1)
  - Pericarditis [Recovered/Resolved]

NARRATIVE: CASE EVENT DATE: 20181203
